FAERS Safety Report 13535126 (Version 1)
Quarter: 2017Q2

REPORT INFORMATION
  Report Type: Spontaneous
  Country: US (occurrence: US)
  Receive Date: 20170510
  Receipt Date: 20170510
  Transmission Date: 20170830
  Serious: Yes (Other)
  Sender: FDA-Public Use
  Company Number: None

PATIENT
  Age: 68 Year
  Sex: Female
  Weight: 79.65 kg

DRUGS (1)
  1. IBRANCE [Suspect]
     Active Substance: PALBOCICLIB
     Indication: BREAST CANCER METASTATIC
     Route: 048
     Dates: start: 20170316, end: 20170510

REACTIONS (5)
  - Fall [None]
  - Loss of consciousness [None]
  - Headache [None]
  - Head injury [None]
  - Laceration [None]

NARRATIVE: CASE EVENT DATE: 20170506
